FAERS Safety Report 25764825 (Version 1)
Quarter: 2025Q3

REPORT INFORMATION
  Report Type: Spontaneous
  Country: EU (occurrence: EU)
  Receive Date: 20250905
  Receipt Date: 20250905
  Transmission Date: 20251021
  Serious: Yes (Other)
  Sender: TEVA
  Company Number: EU-TEVA-VS-3368146

PATIENT
  Age: 85 Year
  Sex: Male

DRUGS (1)
  1. AMOXICILLIN [Suspect]
     Active Substance: AMOXICILLIN
     Indication: Infection
     Route: 048
     Dates: start: 20250827

REACTIONS (3)
  - Choking [Unknown]
  - Product solubility abnormal [Unknown]
  - Product size issue [Unknown]

NARRATIVE: CASE EVENT DATE: 20250827
